FAERS Safety Report 4372239-5 (Version None)
Quarter: 2004Q2

REPORT INFORMATION
  Report Type: 
  Country: None (occurrence: None)
  Receive Date: 20040603
  Receipt Date: 20040603
  Transmission Date: 20050107
  Serious: Yes (Other)
  Sender: FDA-Public Use
  Company Number: None

PATIENT
  Age: 10 Year
  Sex: Male
  Weight: 40.8237 kg

DRUGS (3)
  1. STRATTERA [Suspect]
     Indication: ASPERGER'S DISORDER
     Dosage: 25/MG ONCE DAILY ORAL
     Route: 048
     Dates: start: 20030608, end: 20040602
  2. STRATTERA [Suspect]
     Indication: ATTENTION DEFICIT/HYPERACTIVITY DISORDER
     Dosage: 25/MG ONCE DAILY ORAL
     Route: 048
     Dates: start: 20030608, end: 20040602
  3. STRATTERA [Suspect]
     Indication: DEVELOPMENTAL DELAY
     Dosage: 25/MG ONCE DAILY ORAL
     Route: 048
     Dates: start: 20030608, end: 20040602

REACTIONS (2)
  - MOOD ALTERED [None]
  - TIC [None]
